FAERS Safety Report 4949730-3 (Version None)
Quarter: 2006Q1

REPORT INFORMATION
  Report Type: 
  Country: None (occurrence: None)
  Receive Date: 20060315
  Receipt Date: 20060306
  Transmission Date: 20060701
  Serious: Yes (Hospitalization, Other)
  Sender: FDA-Public Use
  Company Number: 200514873BCC

PATIENT
  Age: 81 Year
  Sex: Female
  Weight: 57.6068 kg

DRUGS (10)
  1. ALEVE (CAPLET) [Suspect]
     Indication: BACK PAIN
     Dosage: PRN, ORAL; 220-440 MG, IRR, ORAL
     Route: 048
     Dates: start: 20041201
  2. ALEVE (CAPLET) [Suspect]
     Indication: PAIN
     Dosage: PRN, ORAL; 220-440 MG, IRR, ORAL
     Route: 048
     Dates: start: 20041201
  3. ALEVE (CAPLET) [Suspect]
     Indication: SCIATICA
     Dosage: PRN, ORAL; 220-440 MG, IRR, ORAL
     Route: 048
     Dates: start: 20041201
  4. ALEVE (CAPLET) [Suspect]
     Indication: BACK PAIN
     Dosage: PRN, ORAL; 220-440 MG, IRR, ORAL
     Route: 048
     Dates: start: 20051122
  5. ALEVE (CAPLET) [Suspect]
     Indication: PAIN
     Dosage: PRN, ORAL; 220-440 MG, IRR, ORAL
     Route: 048
     Dates: start: 20051122
  6. ALEVE (CAPLET) [Suspect]
     Indication: SCIATICA
     Dosage: PRN, ORAL; 220-440 MG, IRR, ORAL
     Route: 048
     Dates: start: 20051122
  7. DILTIA XT [Concomitant]
  8. ST. JOSEPH'S ASPIRIN [Concomitant]
  9. VALIUM [Concomitant]
  10. QUININE [Concomitant]

REACTIONS (20)
  - ABASIA [None]
  - ABDOMINAL DISTENSION [None]
  - ANAEMIA [None]
  - AORTIC DISORDER [None]
  - ASTHENIA [None]
  - BLOOD GLUCOSE INCREASED [None]
  - BLOOD UREA INCREASED [None]
  - ELECTROCARDIOGRAM ST SEGMENT ABNORMAL [None]
  - FAECAL INCONTINENCE [None]
  - FATIGUE [None]
  - GASTRIC MUCOSAL HYPERTROPHY [None]
  - GASTRIC ULCER HAEMORRHAGE [None]
  - HIATUS HERNIA [None]
  - LOSS OF CONSCIOUSNESS [None]
  - MENTAL IMPAIRMENT [None]
  - MYOCARDIAL INFARCTION [None]
  - SPEECH DISORDER [None]
  - SUPRAVENTRICULAR EXTRASYSTOLES [None]
  - SYNCOPE [None]
  - WHITE BLOOD CELL COUNT INCREASED [None]
